FAERS Safety Report 25443177 (Version 1)
Quarter: 2025Q2

REPORT INFORMATION
  Report Type: Spontaneous
  Country: CA (occurrence: CA)
  Receive Date: 20250617
  Receipt Date: 20250617
  Transmission Date: 20250717
  Serious: Yes (Disabling, Other)
  Sender: ALEXION PHARMACEUTICALS
  Company Number: None

PATIENT
  Age: 60 Year

DRUGS (9)
  1. PULMICORT TURBUHALER [Suspect]
     Active Substance: BUDESONIDE
     Route: 065
  2. INFLIXIMAB [Suspect]
     Active Substance: INFLIXIMAB
     Indication: Colitis ulcerative
     Route: 065
  3. INFLIXIMAB [Suspect]
     Active Substance: INFLIXIMAB
     Route: 065
  4. INFLIXIMAB [Suspect]
     Active Substance: INFLIXIMAB
     Route: 065
  5. INFLIXIMAB [Suspect]
     Active Substance: INFLIXIMAB
     Route: 065
  6. INFLIXIMAB [Suspect]
     Active Substance: INFLIXIMAB
     Route: 065
  7. MESALAMINE [Suspect]
     Active Substance: MESALAMINE
     Route: 065
  8. BENZYLHYDROCHLOROTHIAZIDE [Concomitant]
     Active Substance: BENZYLHYDROCHLOROTHIAZIDE
  9. RAMIPRIL [Concomitant]
     Active Substance: RAMIPRIL
     Route: 065

REACTIONS (9)
  - Blood pressure diastolic decreased [Recovered/Resolved]
  - Defaecation urgency [Recovered/Resolved]
  - Drug ineffective [Recovered/Resolved]
  - Haematochezia [Recovered/Resolved]
  - Intentional product use issue [Recovered/Resolved]
  - Iron deficiency [Recovered/Resolved]
  - Loss of personal independence in daily activities [Recovered/Resolved]
  - Mucous stools [Recovered/Resolved]
  - Proctitis [Recovered/Resolved]
